FAERS Safety Report 12885207 (Version 1)
Quarter: 2016Q4

REPORT INFORMATION
  Report Type: Spontaneous
  Country: CA (occurrence: CA)
  Receive Date: 20161026
  Receipt Date: 20161026
  Transmission Date: 20170207
  Serious: Yes (Other)
  Sender: FDA-Public Use
  Company Number: CA-TEVA-705236USA

PATIENT
  Age: 64 Year
  Sex: Female

DRUGS (4)
  1. BETAMETHASONE DIPROPIONATE, CALCIPOTRIOL [Suspect]
     Active Substance: BETAMETHASONE DIPROPIONATE\CALCIPOTRIENE
     Indication: PUSTULAR PSORIASIS
     Dosage: BETAMETHASONE DIPROPIONATE (CONC: 0.05%) TWICE DAILY
     Route: 061
  2. BETAMETHASONE DIPROPIONATE, CALCIPOTRIOL [Suspect]
     Active Substance: BETAMETHASONE DIPROPIONATE\CALCIPOTRIENE
     Indication: PUSTULAR PSORIASIS
     Dosage: BETAMETHASONE DIPROPIONATE (CONC: 0.05%) TWICE DAILY
     Route: 061
  3. BETAMETHASONE DIPROPIONATE, CALCIPOTRIOL [Suspect]
     Active Substance: BETAMETHASONE DIPROPIONATE\CALCIPOTRIENE
     Indication: PUSTULAR PSORIASIS
     Dosage: BETAMETHASONE DIPROPIONATE (CONC: 0.05%) ONCE DAILY
     Route: 061
  4. BETAMETHASONE. [Suspect]
     Active Substance: BETAMETHASONE
     Indication: PUSTULAR PSORIASIS
     Dosage: CONC: 0.05% TWICE DAILY FOR 3 MONTHS
     Route: 061

REACTIONS (1)
  - Chorioretinopathy [Recovered/Resolved]
